FAERS Safety Report 8289254-1 (Version None)
Quarter: 2012Q2

REPORT INFORMATION
  Report Type: 
  Country: None (occurrence: None)
  Receive Date: 20120417
  Receipt Date: 20120411
  Transmission Date: 20120825
  Serious: Yes (Disabling)
  Sender: FDA-Public Use
  Company Number: PHHY2012FR022979

PATIENT
  Sex: Female

DRUGS (8)
  1. ALUMINUM HYDROXIDE AND MAGNESIUM TRISILICATE [Concomitant]
  2. PROPRANOLOL [Concomitant]
     Dosage: UNK UKN, UNK
  3. VALACYCLOVIR HYDROCHLORIDE [Concomitant]
     Dosage: UNK UKN, UNK
  4. ALDACTONE [Concomitant]
  5. EMEND [Concomitant]
     Dosage: UNK UKN, UNK
  6. LOPERAMIDE [Suspect]
     Indication: DIARRHOEA
     Dosage: UNK
     Dates: start: 20120128, end: 20120324
  7. ZOFRAN [Concomitant]
  8. NEXIUM [Concomitant]

REACTIONS (4)
  - VOMITING [None]
  - DIARRHOEA [None]
  - FAECES DISCOLOURED [None]
  - NAUSEA [None]
